FAERS Safety Report 15852561 (Version 1)
Quarter: 2019Q1

REPORT INFORMATION
  Report Type: Spontaneous
  Country: US (occurrence: US)
  Receive Date: 20190122
  Receipt Date: 20190122
  Transmission Date: 20190417
  Serious: No
  Sender: FDA-Public Use
  Company Number: US-ELI_LILLY_AND_COMPANY-US201901009531

PATIENT
  Sex: Female

DRUGS (2)
  1. ADMELOG [Concomitant]
     Active Substance: INSULIN LISPRO
     Indication: PRODUCT USED FOR UNKNOWN INDICATION
  2. BASAGLAR [Suspect]
     Active Substance: INSULIN GLARGINE
     Indication: DIABETES MELLITUS
     Dosage: UNK UNK, UNKNOWN
     Route: 058
     Dates: start: 2018

REACTIONS (3)
  - Neuropathy peripheral [Not Recovered/Not Resolved]
  - Pain [Not Recovered/Not Resolved]
  - Neuropathic arthropathy [Not Recovered/Not Resolved]
